FAERS Safety Report 25224724 (Version 1)
Quarter: 2025Q2

REPORT INFORMATION
  Report Type: Spontaneous
  Country: ES (occurrence: ES)
  Receive Date: 20250422
  Receipt Date: 20250422
  Transmission Date: 20250717
  Serious: Yes (Hospitalization, Other)
  Sender: RECORDATI
  Company Number: ES-ORPHANEU-2025002695

PATIENT
  Age: 58 Year
  Sex: Female
  Weight: 78 kg

DRUGS (4)
  1. PASIREOTIDE [Suspect]
     Active Substance: PASIREOTIDE
     Indication: Pituitary-dependent Cushing^s syndrome
     Dosage: 40 MG, QM (EVERY MONTH)
     Route: 030
     Dates: start: 202407, end: 202503
  2. PASIREOTIDE [Suspect]
     Active Substance: PASIREOTIDE
     Indication: Pituitary tumour
  3. CABERGOLINE [Concomitant]
     Active Substance: CABERGOLINE
     Indication: Cushing^s syndrome
     Dosage: 3 MG, QW
     Route: 048
     Dates: start: 202205
  4. CABERGOLINE [Concomitant]
     Active Substance: CABERGOLINE
     Indication: Pituitary tumour

REACTIONS (2)
  - Neoplasm progression [Recovering/Resolving]
  - Hyperglycaemia [Recovering/Resolving]

NARRATIVE: CASE EVENT DATE: 20240701
